FAERS Safety Report 11242762 (Version 1)
Quarter: 2015Q3

REPORT INFORMATION
  Report Type: Other
  Country: TR (occurrence: TR)
  Receive Date: 20150707
  Receipt Date: 20150707
  Transmission Date: 20151125
  Serious: No
  Sender: FDA-Public Use
  Company Number: TR-LUPIN PHARMACEUTICALS INC.-2015-01083

PATIENT
  Age: 39 Year
  Sex: Female

DRUGS (2)
  1. DULOXETINE. [Suspect]
     Active Substance: DULOXETINE
     Indication: DEPRESSION
     Dosage: 60 MG
  2. DULOXETINE. [Suspect]
     Active Substance: DULOXETINE
     Dosage: UNKNOWN

REACTIONS (2)
  - Drug withdrawal syndrome [Recovered/Resolved]
  - Female sexual arousal disorder [Recovered/Resolved]
